FAERS Safety Report 20280254 (Version 1)
Quarter: 2022Q1

REPORT INFORMATION
  Report Type: Spontaneous
  Country: IT (occurrence: IT)
  Receive Date: 20220103
  Receipt Date: 20220103
  Transmission Date: 20220424
  Serious: Yes (Hospitalization)
  Sender: FDA-Public Use
  Company Number: None

PATIENT
  Age: 63 Year
  Sex: Female

DRUGS (8)
  1. ASPIRIN [Suspect]
     Active Substance: ASPIRIN
     Indication: Atrial fibrillation
     Dosage: 100 MG, QD
     Route: 065
     Dates: start: 20200101, end: 20200503
  2. COUMADIN [Suspect]
     Active Substance: WARFARIN SODIUM
     Indication: Atrial fibrillation
     Dosage: UNK
     Route: 065
     Dates: start: 20200101, end: 20200503
  3. TAPAZOLE [Concomitant]
     Active Substance: METHIMAZOLE
     Indication: Product used for unknown indication
     Dosage: 3 DF
     Route: 065
  4. BISOPROLOL FUMARATE [Concomitant]
     Active Substance: BISOPROLOL FUMARATE
     Indication: Product used for unknown indication
     Dosage: 10 MG
     Route: 065
  5. LASIX [Concomitant]
     Active Substance: FUROSEMIDE
     Indication: Product used for unknown indication
     Dosage: 50 MG
     Route: 065
  6. VERAPAMIL HYDROCHLORIDE [Concomitant]
     Active Substance: VERAPAMIL HYDROCHLORIDE
     Indication: Product used for unknown indication
     Dosage: 240 MG
     Route: 065
  7. OMEPRAZOLE [Concomitant]
     Active Substance: OMEPRAZOLE
     Indication: Product used for unknown indication
     Dosage: UNK
     Route: 065
  8. VALSARTAN [Concomitant]
     Active Substance: VALSARTAN
     Indication: Product used for unknown indication
     Dosage: 160 MG
     Route: 065

REACTIONS (3)
  - Asthenia [Recovering/Resolving]
  - Abdominal tenderness [Recovering/Resolving]
  - Vomiting [Recovering/Resolving]

NARRATIVE: CASE EVENT DATE: 20200503
